FAERS Safety Report 23590347 (Version 1)
Quarter: 2024Q1

REPORT INFORMATION
  Report Type: Spontaneous
  Country: US (occurrence: None)
  Receive Date: 20240301
  Receipt Date: 20240301
  Transmission Date: 20240409
  Serious: Yes (Disabling, Other)
  Sender: FDA-Public Use
  Company Number: None

PATIENT
  Age: 66 Year
  Sex: Female
  Weight: 83.25 kg

DRUGS (4)
  1. AMANTADINE [Suspect]
     Active Substance: AMANTADINE
     Indication: Restless legs syndrome
     Dosage: FREQUENCY : DAILY;?
     Route: 048
     Dates: start: 20230701, end: 20240201
  2. AMANTADINE [Suspect]
     Active Substance: AMANTADINE
     Indication: Parkinsonism
  3. Carvidopa/Levidopa [Concomitant]
  4. BUPROPION [Concomitant]
     Active Substance: BUPROPION

REACTIONS (5)
  - Hallucination [None]
  - Visual impairment [None]
  - Corneal oedema [None]
  - Psychotic disorder [None]
  - Therapy cessation [None]

NARRATIVE: CASE EVENT DATE: 20240102
